FAERS Safety Report 9934663 (Version 1)
Quarter: 2014Q1

REPORT INFORMATION
  Report Type: Spontaneous
  Country: US (occurrence: US)
  Receive Date: 20140228
  Receipt Date: 20140228
  Transmission Date: 20141002
  Serious: No
  Sender: FDA-Public Use
  Company Number: US-ASTRAZENECA-2013SE89575

PATIENT
  Age: 81 Year
  Sex: Female
  Weight: 72.6 kg

DRUGS (9)
  1. TOPROL-XL [Suspect]
     Indication: TACHYCARDIA
     Route: 048
     Dates: start: 2006, end: 2009
  2. TOPROL-XL [Suspect]
     Indication: HYPERTENSION
     Route: 048
     Dates: start: 2006, end: 2009
  3. TOPROL-XL [Suspect]
     Indication: TACHYCARDIA
     Dosage: GENERIC 50 MG EVERY MORNING
     Route: 048
     Dates: start: 2009
  4. TOPROL-XL [Suspect]
     Indication: HYPERTENSION
     Dosage: GENERIC 50 MG EVERY MORNING
     Route: 048
     Dates: start: 2009
  5. ASPIRIN [Concomitant]
     Dosage: 80MG
  6. SYNTHROID [Concomitant]
     Indication: THYROID DISORDER
     Route: 048
     Dates: end: 201302
  7. LEVOXIL [Concomitant]
     Indication: THYROID DISORDER
     Route: 048
     Dates: start: 201302, end: 201303
  8. COZAR [Concomitant]
     Indication: BLOOD PRESSURE ABNORMAL
     Dates: start: 2006
  9. LANTUS INSULIN [Concomitant]
     Indication: DIABETES MELLITUS

REACTIONS (12)
  - Heart rate increased [Recovered/Resolved]
  - Musculoskeletal discomfort [Not Recovered/Not Resolved]
  - Blood cholesterol increased [Unknown]
  - Glycosylated haemoglobin increased [Not Recovered/Not Resolved]
  - Vitamin B12 deficiency [Unknown]
  - Feeling abnormal [Unknown]
  - Increased appetite [Unknown]
  - Muscle spasms [Unknown]
  - Fatigue [Not Recovered/Not Resolved]
  - Weight increased [Not Recovered/Not Resolved]
  - Abdominal discomfort [Recovered/Resolved]
  - Drug dose omission [Unknown]
